FAERS Safety Report 20525775 (Version 1)
Quarter: 2022Q1

REPORT INFORMATION
  Report Type: Spontaneous
  Country: IT (occurrence: IT)
  Receive Date: 20220228
  Receipt Date: 20220228
  Transmission Date: 20220423
  Serious: Yes (Other)
  Sender: FDA-Public Use
  Company Number: IT-JNJFOC-20220220500

PATIENT
  Age: 22 Year
  Sex: Female
  Weight: 56 kg

DRUGS (8)
  1. LORAZEPAM [Suspect]
     Active Substance: LORAZEPAM
     Indication: Intentional self-injury
     Route: 065
  2. TOPAMAX [Suspect]
     Active Substance: TOPIRAMATE
     Indication: Product used for unknown indication
     Route: 048
  3. FERROUS SULFATE [Suspect]
     Active Substance: FERROUS SULFATE
     Indication: Intentional self-injury
     Dosage: 30 PROLONGED-RELEASE TABLETS
     Route: 048
  4. VALPROATE SODIUM [Suspect]
     Active Substance: VALPROATE SODIUM
     Indication: Intentional self-injury
     Dosage: 30 TABLETS
     Route: 048
  5. VALPROATE SODIUM [Suspect]
     Active Substance: VALPROATE SODIUM
     Indication: Intentional self-injury
     Dosage: 30 TABLETS
     Route: 048
  6. VENLAFAXINE [Suspect]
     Active Substance: VENLAFAXINE HYDROCHLORIDE
     Indication: Intentional self-injury
     Dosage: 10 CAPSULES
     Route: 048
  7. TACHIPIRINA [Suspect]
     Active Substance: ACETAMINOPHEN
     Indication: Intentional self-injury
     Route: 048
  8. LITHIUM SULFATE [Suspect]
     Active Substance: LITHIUM SULFATE
     Indication: Intentional self-injury
     Dosage: 50 PROLONGED-RELEASE TABLETS
     Route: 048

REACTIONS (2)
  - Intentional self-injury [Unknown]
  - Overdose [Unknown]
